FAERS Safety Report 10619177 (Version 1)
Quarter: 2014Q4

REPORT INFORMATION
  Report Type: Spontaneous
  Country: US (occurrence: None)
  Receive Date: 20141126
  Receipt Date: 20141126
  Transmission Date: 20150529
  Serious: Yes (Hospitalization)
  Sender: FDA-Public Use
  Company Number: KAD201411-001511

PATIENT
  Age: 64 Year
  Sex: Male

DRUGS (3)
  1. RIBASPHERE RIBAPAK [Suspect]
     Active Substance: RIBAVIRIN
     Indication: HEPATITIS C
     Dates: start: 20140917
  2. PEGASYS [Suspect]
     Active Substance: PEGINTERFERON ALFA-2A
     Dates: start: 20140917
  3. SOVALDI [Suspect]
     Active Substance: SOFOSBUVIR
     Dates: start: 20140917

REACTIONS (1)
  - Platelet count decreased [None]
